FAERS Safety Report 24840595 (Version 1)
Quarter: 2025Q1

REPORT INFORMATION
  Report Type: Spontaneous
  Country: US (occurrence: None)
  Receive Date: 20250113
  Receipt Date: 20250113
  Transmission Date: 20250408
  Serious: Yes (Death)
  Sender: FDA-CTU
  Company Number: None

PATIENT
  Age: 70 Year
  Sex: Male
  Weight: 97.5 kg

DRUGS (2)
  1. PROPOFOL [Suspect]
     Active Substance: PROPOFOL
     Indication: New onset refractory status epilepticus
     Route: 041
     Dates: start: 20241204, end: 20241209
  2. LACOSAMIDE [Suspect]
     Active Substance: LACOSAMIDE

REACTIONS (7)
  - Blood lactic acid increased [None]
  - Blood creatine phosphokinase increased [None]
  - Atrial fibrillation [None]
  - Electrocardiogram QT prolonged [None]
  - Ventricular tachycardia [None]
  - Cardiac arrest [None]
  - Hospice care [None]

NARRATIVE: CASE EVENT DATE: 20241209
